FAERS Safety Report 15895102 (Version 3)
Quarter: 2019Q4

REPORT INFORMATION
  Report Type: Report from Study
  Country: NL (occurrence: NL)
  Receive Date: 20190131
  Receipt Date: 20191101
  Transmission Date: 20200122
  Serious: Yes (Life-Threatening, Hospitalization, Other)
  Sender: FDA-Public Use
  Company Number: PHHY2019NL019595

PATIENT
  Age: 65 Year
  Sex: Male
  Weight: 72.5 kg

DRUGS (9)
  1. SANDOSTATIN LAR DEPOT [Suspect]
     Active Substance: OCTREOTIDE ACETATE
     Indication: NEUROENDOCRINE TUMOUR
     Dosage: 30MG/2ML, Q4W
     Route: 030
  2. SANDOSTATIN LAR DEPOT [Suspect]
     Active Substance: OCTREOTIDE ACETATE
     Dosage: UNK
     Route: 030
     Dates: start: 20141126
  3. GLYCOPHOS [Concomitant]
     Active Substance: SODIUM GLYCEROPHOSPHATE ANHYDROUS
     Indication: PRODUCT USED FOR UNKNOWN INDICATION
     Dosage: FLACON 20 ML, 15 MMOL PER INFUSION,
     Route: 042
  4. CREON FORTE [Concomitant]
     Indication: PRODUCT USED FOR UNKNOWN INDICATION
     Dosage: 300 MG (08:00 / 12:00 / 17:00)
     Route: 048
     Dates: start: 201902
  5. SANDOSTATIN LAR DEPOT [Suspect]
     Active Substance: OCTREOTIDE ACETATE
     Dosage: 30MG/2ML, Q4W
     Route: 030
     Dates: start: 201410
  6. METFORMIN HYDROCHLORIDE. [Concomitant]
     Active Substance: METFORMIN HYDROCHLORIDE
     Indication: PRODUCT USED FOR UNKNOWN INDICATION
     Dosage: 500 MG 908:00 1 PIECE)
     Route: 048
  7. IMODIUM [Concomitant]
     Active Substance: LOPERAMIDE HYDROCHLORIDE
     Indication: PRODUCT USED FOR UNKNOWN INDICATION
     Dosage: 20 ML (06:00 / 09:00 / 12:00 / 15:00 / 18:00 / 21:00)
     Route: 048
  8. ONDANSETRON [Concomitant]
     Active Substance: ONDANSETRON
     Indication: DIARRHOEA
     Dosage: UNK
     Route: 065
     Dates: start: 201902
  9. ORAMORPH [Concomitant]
     Active Substance: MORPHINE SULFATE
     Indication: PRODUCT USED FOR UNKNOWN INDICATION
     Dosage: 5 MG, 2.5ML  (2MG/ML FLACON 5ML), 08:00 / 17:00 5 MG=2.5ML
     Route: 048

REACTIONS (25)
  - Blood chromogranin A increased [Unknown]
  - Hypomagnesaemia [Unknown]
  - Malnutrition [Unknown]
  - Flushing [Unknown]
  - Hypovolaemic shock [Unknown]
  - Hypocalcaemia [Unknown]
  - Neuroendocrine tumour [Unknown]
  - Chronic kidney disease [Recovered/Resolved]
  - Hyponatraemia [Unknown]
  - Gastrointestinal stoma complication [Unknown]
  - Dehydration [Recovering/Resolving]
  - Electrolyte imbalance [Unknown]
  - Hypophosphataemia [Unknown]
  - Stoma complication [Not Recovered/Not Resolved]
  - Diarrhoea [Not Recovered/Not Resolved]
  - Metastasis [Not Recovered/Not Resolved]
  - Serum serotonin increased [Unknown]
  - Hypokalaemia [Unknown]
  - Type 2 diabetes mellitus [Unknown]
  - Thirst [Unknown]
  - Fatigue [Unknown]
  - Malignant neoplasm progression [Unknown]
  - Weight increased [Unknown]
  - Asthenia [Unknown]
  - Dehydration [Recovered/Resolved]

NARRATIVE: CASE EVENT DATE: 201606
